FAERS Safety Report 9547314 (Version 1)
Quarter: 2013Q2

REPORT INFORMATION
  Report Type: Spontaneous
  Country: US (occurrence: None)
  Receive Date: 20130524
  Receipt Date: 20130524
  Transmission Date: 20140414
  Serious: No
  Sender: FDA-Public Use
  Company Number: PHEH2012US024111

PATIENT
  Age: 39 Year
  Sex: Female
  Weight: 78 kg

DRUGS (4)
  1. GILENYA [Suspect]
     Route: 048
     Dates: start: 20121205, end: 20121206
  2. PRENATAL VITAMINS (ASCORBIC ACID, BIOTIN, MINERALS NOS, NICOTINIC ACID, RETINOL, TOCOPHEROL, VITAMIN B NOS, VITAMIN D NOS) [Concomitant]
  3. AMBIEN (ZOLPIDEM TARTRATE) [Concomitant]
  4. COPAXONE (GLATIRAMER ACETATE) [Concomitant]

REACTIONS (11)
  - Abnormal sensation in eye [None]
  - Feeling cold [None]
  - Feeling abnormal [None]
  - Chest discomfort [None]
  - Nausea [None]
  - Blood pressure decreased [None]
  - Hypoaesthesia [None]
  - Malaise [None]
  - Paraesthesia [None]
  - Headache [None]
  - Diarrhoea [None]
